FAERS Safety Report 9006927 (Version 1)
Quarter: 2013Q1

REPORT INFORMATION
  Report Type: Report from Study
  Country: VE (occurrence: VE)
  Receive Date: 20130110
  Receipt Date: 20130110
  Transmission Date: 20140127
  Serious: Yes (Hospitalization)
  Sender: FDA-Public Use
  Company Number: VE-ABBOTT-13P-178-1032718-00

PATIENT
  Sex: Female

DRUGS (2)
  1. HUMIRA [Suspect]
     Indication: PSORIASIS
     Route: 058
     Dates: end: 2011
  2. METHOTREXATE [Concomitant]
     Indication: PSORIASIS
     Dosage: VO

REACTIONS (2)
  - Thrombophlebitis [Unknown]
  - Dermatitis allergic [Unknown]
